FAERS Safety Report 6917462-8 (Version None)
Quarter: 2010Q3

REPORT INFORMATION
  Report Type: 
  Country: None (occurrence: None)
  Receive Date: 20100805
  Receipt Date: 20100721
  Transmission Date: 20110219
  Serious: No
  Sender: FDA-Public Use
  Company Number: ALD1-JP-2010-0038

PATIENT
  Age: 38 Year
  Sex: Female

DRUGS (8)
  1. ALDOMET [Suspect]
     Indication: HYPERTENSIVE NEPHROPATHY
     Dosage: 500 MG (250 MG, 2 IN 1 D), 500 MG (250 MG, 2 IN 1 D), ORAL
     Route: 048
     Dates: start: 20100705, end: 20100708
  2. ALDOMET [Suspect]
     Indication: HYPERTENSIVE NEPHROPATHY
     Dosage: 500 MG (250 MG, 2 IN 1 D), 500 MG (250 MG, 2 IN 1 D), ORAL
     Route: 048
     Dates: start: 20100702
  3. FESIN 9SACCHARATED IRON OXIDE) (SACCHARATED IRON OXIDE) [Suspect]
     Indication: PRODUCT USED FOR UNKNOWN INDICATION
     Dosage: 80 MG, INJECTION
     Dates: start: 20100703, end: 20100708
  4. MAGLAX (MAGNESIUM OXIDE) (MAGNESIUM OXIDE) [Concomitant]
  5. APRESOLINE [Concomitant]
  6. MAGNESOL (MAGNESIUM SLUFATE) (MAGNESIUM SULFATE) [Concomitant]
  7. PERIDPINE (NICARDIPINE HYDROCHLORIDE) (NICARDIPINE HYDROCHLORIDE) [Concomitant]
  8. PANSPORIN (CEFOTIAM HYDROCHLORIDE) (CEFOTIAM HYDROCHLORIDE) [Concomitant]

REACTIONS (3)
  - CAESAREAN SECTION [None]
  - DRUG EXPOSURE DURING PREGNANCY [None]
  - HEPATIC FUNCTION ABNORMAL [None]
